FAERS Safety Report 5281558-X (Version None)
Quarter: 2007Q1

REPORT INFORMATION
  Report Type: 
  Country: None (occurrence: None)
  Receive Date: 20070326
  Receipt Date: 20070313
  Transmission Date: 20070707
  Serious: Yes (Other)
  Sender: FDA-Public Use
  Company Number: CERZ-11562

PATIENT
  Sex: Male
  Weight: 3.5 kg

DRUGS (2)
  1. CEREZYME [Suspect]
     Indication: DRUG EXPOSURE DURING PREGNANCY
  2. CEREZYME [Suspect]
     Indication: DRUG EXPOSURE VIA BREAST MILK

REACTIONS (5)
  - CAESAREAN SECTION [None]
  - DRUG EXPOSURE DURING PREGNANCY [None]
  - DRUG EXPOSURE VIA BREAST MILK [None]
  - LACTOSE INTOLERANCE [None]
  - NEONATAL PNEUMONIA [None]
